FAERS Safety Report 9935225 (Version 1)
Quarter: 2014Q1

REPORT INFORMATION
  Report Type: Spontaneous
  Country: US (occurrence: US)
  Receive Date: 20140228
  Receipt Date: 20140228
  Transmission Date: 20141002
  Serious: Yes (Other)
  Sender: FDA-Public Use
  Company Number: US-TEVA-465704USA

PATIENT
  Age: 30 Year
  Sex: Female
  Weight: 93.52 kg

DRUGS (2)
  1. PARAGARD 380A [Suspect]
     Indication: CONTRACEPTION
     Route: 015
     Dates: start: 20140211, end: 20140214
  2. COUMADIN [Concomitant]
     Indication: PULMONARY EMBOLISM

REACTIONS (1)
  - Embedded device [Recovered/Resolved]
